FAERS Safety Report 11082081 (Version 1)
Quarter: 2015Q2

REPORT INFORMATION
  Report Type: Spontaneous
  Country: RU (occurrence: None)
  Receive Date: 20150429
  Receipt Date: 20150429
  Transmission Date: 20150821
  Serious: Yes (Hospitalization)
  Sender: FDA-Public Use
  Company Number: FK201501922

PATIENT
  Age: 9 Month
  Sex: Male

DRUGS (2)
  1. CEFTRIAXON KABI (CEFTRIAXONE) (CEFTRIAXONE) [Suspect]
     Active Substance: CEFTRIAXONE
     Indication: PRODUCT USED FOR UNKNOWN INDICATION
     Route: 030
  2. LIDOCAINE (LIDOCAINE) [Concomitant]
     Active Substance: LIDOCAINE

REACTIONS (1)
  - Urticaria vesiculosa [None]

NARRATIVE: CASE EVENT DATE: 20150211
